FAERS Safety Report 7626090-0 (Version None)
Quarter: 2011Q3

REPORT INFORMATION
  Report Type: 
  Country: None (occurrence: None)
  Receive Date: 20110713
  Receipt Date: 20110628
  Transmission Date: 20111222
  Serious: Yes (Life-Threatening, Hospitalization)
  Sender: FDA-Public Use
  Company Number: 2011MA008253

PATIENT
  Age: 20 Year
  Sex: Female

DRUGS (3)
  1. MULTI-VITAMINS [Concomitant]
  2. OMEGA-3-ACID ETHYL ESTERS [Concomitant]
  3. ATOMOXETINE HYDROCHLORIDE CAPSULES, EQ. 25MG (AELLC) [Suspect]
     Indication: ATTENTION DEFICIT/HYPERACTIVITY DISORDER
     Dosage: 25 MG, QD

REACTIONS (1)
  - MYOCARDIAL INFARCTION [None]
